FAERS Safety Report 8225187 (Version 3)
Quarter: 2013Q4

REPORT INFORMATION
  Report Type: Spontaneous
  Country: US (occurrence: US)
  Receive Date: 20111103
  Receipt Date: 20131206
  Transmission Date: 20140711
  Serious: Yes (Other)
  Sender: FDA-Public Use
  Company Number: US-ROCHE-1008215

PATIENT
  Age: 19 Year
  Sex: Male

DRUGS (4)
  1. ACCUTANE [Suspect]
     Indication: ACNE CYSTIC
     Route: 065
     Dates: start: 19940808, end: 19950109
  2. ACCUTANE [Suspect]
     Route: 065
     Dates: start: 1992, end: 1995
  3. ACCUTANE [Suspect]
     Route: 065
     Dates: start: 19940805
  4. ACCUTANE [Suspect]
     Route: 065
     Dates: start: 19940906

REACTIONS (6)
  - Crohn^s disease [Unknown]
  - Inflammatory bowel disease [Unknown]
  - Injury [Unknown]
  - Stomatitis [Unknown]
  - Lip dry [Unknown]
  - Epistaxis [Unknown]
